FAERS Safety Report 5216696-0 (Version None)
Quarter: 2007Q1

REPORT INFORMATION
  Report Type: 
  Country: None (occurrence: None)
  Receive Date: 20061130
  Receipt Date: 20060922
  Transmission Date: 20070707
  Serious: Yes (Hospitalization)
  Sender: FDA-Public Use
  Company Number: US200603005164

PATIENT
  Age: 41 Year
  Sex: Female

DRUGS (6)
  1. ZYPREXA [Suspect]
     Dosage: SEE IMAGE
     Dates: start: 20020101
  2. METPROLOL (METOPROLOL) [Concomitant]
  3. ZOLOFT [Concomitant]
  4. DIOVAN [Concomitant]
  5. WELLBATRIN (BUPROPION HYDROCHLORIDE) [Concomitant]
  6. NORVASC [Concomitant]

REACTIONS (2)
  - DIABETES MELLITUS [None]
  - MIGRAINE [None]
